FAERS Safety Report 8846199 (Version 3)
Quarter: 2013Q2

REPORT INFORMATION
  Report Type: Report from Study
  Country: US (occurrence: US)
  Receive Date: 20121017
  Receipt Date: 20130424
  Transmission Date: 20140414
  Serious: Yes (Hospitalization, Other)
  Sender: FDA-Public Use
  Company Number: US-ACTELION-A-US2012-72873

PATIENT
  Age: 71 Year
  Sex: Female

DRUGS (3)
  1. VENTAVIS [Suspect]
     Indication: PULMONARY ARTERIAL HYPERTENSION
     Dosage: UNK
     Route: 055
  2. VENTAVIS [Suspect]
     Dosage: UNK
     Route: 055
     Dates: start: 20130418
  3. SILDENAFIL [Concomitant]

REACTIONS (3)
  - Cardiac valve disease [Unknown]
  - Cardiac disorder [Unknown]
  - Bradycardia [Recovered/Resolved]
